FAERS Safety Report 7375906-4 (Version None)
Quarter: 2011Q1

REPORT INFORMATION
  Report Type: 
  Country: None (occurrence: None)
  Receive Date: 20110325
  Receipt Date: 20110318
  Transmission Date: 20110831
  Serious: Yes (Other)
  Sender: FDA-Public Use
  Company Number: B0706816A

PATIENT
  Age: 73 Year
  Sex: Female

DRUGS (5)
  1. AMITRIPTYLINE [Suspect]
  2. GABAPENTIN [Suspect]
     Dosage: 1800MG PER DAY
  3. OXYCONTIN [Suspect]
  4. RANITIDINE [Suspect]
  5. SOLIFENACIN SUCCINATE [Suspect]

REACTIONS (1)
  - TRANSIENT ISCHAEMIC ATTACK [None]
